FAERS Safety Report 21329510 (Version 1)
Quarter: 2022Q3

REPORT INFORMATION
  Report Type: Spontaneous
  Country: US (occurrence: US)
  Receive Date: 20220913
  Receipt Date: 20220913
  Transmission Date: 20221027
  Serious: Yes (Life-Threatening, Hospitalization, Other)
  Sender: FDA-Public Use
  Company Number: US-NOVARTISPH-NVSC2018US016971

PATIENT
  Age: 52 Year
  Sex: Male

DRUGS (18)
  1. ROCURONIUM BROMIDE [Suspect]
     Active Substance: ROCURONIUM BROMIDE
     Indication: Induction and maintenance of anaesthesia
     Dosage: 5 MG (INDUCTION DOSE)
     Route: 042
  2. ROCURONIUM BROMIDE [Suspect]
     Active Substance: ROCURONIUM BROMIDE
     Dosage: 140 MG (MAINTENANCE DOSE AT AROUND 4:10 PM)
     Route: 042
  3. SUCCINYLCHOLINE CHLORIDE [Suspect]
     Active Substance: SUCCINYLCHOLINE CHLORIDE
     Indication: Induction of anaesthesia
     Dosage: 120 MG
     Route: 042
  4. DESFLURANE [Suspect]
     Active Substance: DESFLURANE
     Indication: Maintenance of anaesthesia
     Dosage: 6 % (AT AROUND 4:00 PM)
     Route: 065
  5. DESFLURANE [Suspect]
     Active Substance: DESFLURANE
     Dosage: 5.5 % FLOW RATE DECREASED BY 4:15 PM
     Route: 065
  6. MIDAZOLAM [Suspect]
     Active Substance: MIDAZOLAM
     Indication: Induction of anaesthesia
     Dosage: 2 MG
     Route: 042
  7. FENTANYL [Suspect]
     Active Substance: FENTANYL
     Indication: Induction and maintenance of anaesthesia
     Dosage: 150 UG (INDUCTION DOSE AT 3:52 PM)
     Route: 042
  8. FENTANYL [Suspect]
     Active Substance: FENTANYL
     Dosage: 150 UG (MAINTENANCE DOSE AROUND 4:15 PM)
     Route: 042
  9. FENTANYL [Suspect]
     Active Substance: FENTANYL
     Dosage: 250 MG (AT 6:00 PM)
     Route: 042
  10. EPINEPHRINE [Suspect]
     Active Substance: EPINEPHRINE
     Indication: Product used for unknown indication
     Dosage: 1:100,000
     Route: 065
  11. PROPOFOL [Suspect]
     Active Substance: PROPOFOL
     Indication: Induction of anaesthesia
     Dosage: 200 MG
     Route: 042
  12. LIDOCAINE HYDROCHLORIDE [Suspect]
     Active Substance: LIDOCAINE HYDROCHLORIDE
     Indication: Local anaesthesia
     Dosage: 9 ML
     Route: 065
  13. LISINOPRIL [Concomitant]
     Active Substance: LISINOPRIL
     Indication: Product used for unknown indication
     Dosage: UNK
     Route: 065
  14. METFORMIN [Concomitant]
     Active Substance: METFORMIN HYDROCHLORIDE
     Indication: Product used for unknown indication
     Dosage: UNK
     Route: 065
  15. CEFAZOLIN [Concomitant]
     Active Substance: CEFAZOLIN
     Indication: Antibiotic prophylaxis
     Dosage: 1 G ADMINISTERED AT 4:20 PM
     Route: 042
  16. METOCLOPRAMIDE [Concomitant]
     Active Substance: METOCLOPRAMIDE
     Indication: Product used for unknown indication
     Dosage: 10 MG
     Route: 042
  17. RANITIDINE [Concomitant]
     Active Substance: RANITIDINE
     Indication: Product used for unknown indication
     Dosage: 50 MG
     Route: 042
  18. DEXAMETHASONE [Concomitant]
     Active Substance: DEXAMETHASONE
     Indication: Product used for unknown indication
     Dosage: 8 MG (ADMINISTERED AT 4:45 PM)
     Route: 042

REACTIONS (2)
  - Hyperthermia malignant [Recovered/Resolved]
  - Rhabdomyolysis [Recovering/Resolving]
